FAERS Safety Report 26005783 (Version 1)
Quarter: 2025Q4

REPORT INFORMATION
  Report Type: Spontaneous
  Country: US (occurrence: None)
  Receive Date: 20251105
  Receipt Date: 20251105
  Transmission Date: 20260118
  Serious: Yes (Hospitalization, Other)
  Sender: FDA-CTU
  Company Number: None

PATIENT
  Age: 78 Year
  Sex: Female
  Weight: 73.94 kg

DRUGS (1)
  1. REPATHA [Suspect]
     Active Substance: EVOLOCUMAB
     Indication: Hyperlipidaemia
     Dosage: 140 MG/ML Q 2 WEEKS SUBCUTANEOUS
     Route: 058
     Dates: start: 20230310

REACTIONS (1)
  - Myocardial infarction [None]

NARRATIVE: CASE EVENT DATE: 20251022
